FAERS Safety Report 23224422 (Version 1)
Quarter: 2023Q4

REPORT INFORMATION
  Report Type: Other
  Country: None (occurrence: US)
  Receive Date: 20231124
  Receipt Date: 20231124
  Transmission Date: 20240110
  Serious: Yes (Other)
  Sender: FDA-Public Use
  Company Number: US-Avondale Pharmaceuticals, LLC-2148660

PATIENT
  Age: 30 Year
  Sex: Female

DRUGS (5)
  1. NIACOR [Suspect]
     Active Substance: NIACIN
     Indication: Type IIa hyperlipidaemia
     Route: 065
  2. OMEGA-3-ACID ETHYL ESTERS [Suspect]
     Active Substance: OMEGA-3-ACID ETHYL ESTERS
     Route: 065
  3. EZETIMIBE [Suspect]
     Active Substance: EZETIMIBE
     Route: 065
  4. CHOLESTYRAMINE [Suspect]
     Active Substance: CHOLESTYRAMINE
     Route: 065
  5. EVOLOCUMAB [Suspect]
     Active Substance: EVOLOCUMAB
     Route: 065

REACTIONS (3)
  - Treatment failure [Unknown]
  - Adverse event [Unknown]
  - Drug intolerance [Unknown]
